FAERS Safety Report 10493581 (Version 7)
Quarter: 2015Q3

REPORT INFORMATION
  Report Type: Spontaneous
  Country: US (occurrence: US)
  Receive Date: 20141002
  Receipt Date: 20150727
  Transmission Date: 20151125
  Serious: Yes (Hospitalization, Other)
  Sender: FDA-Public Use
  Company Number: US-GLAXOSMITHKLINE-A1085908A

PATIENT
  Age: 67 Year
  Sex: Female

DRUGS (27)
  1. ADVAIR DISKUS [Suspect]
     Active Substance: FLUTICASONE PROPIONATE\SALMETEROL XINAFOATE
     Dosage: UNK
  2. SINGULAIR [Concomitant]
     Active Substance: MONTELUKAST SODIUM
  3. EVISTA [Concomitant]
     Active Substance: RALOXIFENE HYDROCHLORIDE
  4. ADVAIR DISKUS [Suspect]
     Active Substance: FLUTICASONE PROPIONATE\SALMETEROL XINAFOATE
     Dosage: UNK
  5. NEXIUM [Concomitant]
     Active Substance: ESOMEPRAZOLE MAGNESIUM
  6. SPIRIVA [Concomitant]
     Active Substance: TIOTROPIUM BROMIDE MONOHYDRATE
  7. PREDNISONE. [Suspect]
     Active Substance: PREDNISONE
     Indication: PRODUCT USED FOR UNKNOWN INDICATION
  8. OXYBUTYNIN [Concomitant]
     Active Substance: OXYBUTYNIN
  9. CITALOPRAM [Concomitant]
     Active Substance: CITALOPRAM HYDROBROMIDE
  10. NORCO [Concomitant]
     Active Substance: ACETAMINOPHEN\HYDROCODONE BITARTRATE
     Dosage: UNK, PRN
  11. CLARINEX [Concomitant]
     Active Substance: DESLORATADINE
  12. MONTELUKAST [Concomitant]
     Active Substance: MONTELUKAST SODIUM
  13. HYDROCHLOROTHIAZIDE. [Concomitant]
     Active Substance: HYDROCHLOROTHIAZIDE
  14. BENZONATATE. [Concomitant]
     Active Substance: BENZONATATE
  15. ASPIRIN + CAFFEINE + SALICYLAMIDE [Concomitant]
  16. POTASSIUM [Concomitant]
     Active Substance: POTASSIUM
  17. CLONAZEPAM. [Concomitant]
     Active Substance: CLONAZEPAM
  18. VOLTAREN [Concomitant]
     Active Substance: DICLOFENAC SODIUM
  19. ALBUTEROL/IPRATROPIUM [Concomitant]
     Active Substance: ALBUTEROL\IPRATROPIUM
     Route: 055
  20. IBUPROFEN. [Concomitant]
     Active Substance: IBUPROFEN
  21. VENTOLIN HFA [Suspect]
     Active Substance: ALBUTEROL SULFATE
     Indication: CHRONIC OBSTRUCTIVE PULMONARY DISEASE
     Dosage: 2 PUFFS 4 TIMES DAILY AS NEEDED
     Route: 055
  22. RALOXIFENE. [Concomitant]
     Active Substance: RALOXIFENE
  23. LUNESTA [Concomitant]
     Active Substance: ESZOPICLONE
  24. REMEVEN [Concomitant]
     Active Substance: UREA
  25. ALBUTEROL NEBULISER SOLUTION [Concomitant]
     Active Substance: ALBUTEROL SULFATE
     Route: 055
  26. ADVAIR DISKUS [Suspect]
     Active Substance: FLUTICASONE PROPIONATE\SALMETEROL XINAFOATE
     Indication: CHRONIC OBSTRUCTIVE PULMONARY DISEASE
     Dosage: 1 PUFF(S), BID
     Route: 055
  27. FISH OIL [Concomitant]
     Active Substance: FISH OIL

REACTIONS (18)
  - Dyspnoea [Unknown]
  - Insomnia [Unknown]
  - Abdominal distension [Recovering/Resolving]
  - Infection [Not Recovered/Not Resolved]
  - White blood cell count increased [Unknown]
  - Cough [Unknown]
  - Joint swelling [Recovering/Resolving]
  - Blood cholesterol increased [Unknown]
  - Sluggishness [Not Recovered/Not Resolved]
  - Productive cough [Not Recovered/Not Resolved]
  - Lung infection [Recovered/Resolved]
  - Fluid retention [Unknown]
  - Nasopharyngitis [Not Recovered/Not Resolved]
  - Peripheral swelling [Recovering/Resolving]
  - Muscle spasms [Unknown]
  - Chronic obstructive pulmonary disease [Unknown]
  - Pollakiuria [Unknown]
  - Inhalation therapy [Unknown]

NARRATIVE: CASE EVENT DATE: 201411
